FAERS Safety Report 10478473 (Version 1)
Quarter: 2014Q3

REPORT INFORMATION
  Report Type: Spontaneous
  Country: US (occurrence: US)
  Receive Date: 20140926
  Receipt Date: 20140926
  Transmission Date: 20150326
  Serious: No
  Sender: FDA-Public Use
  Company Number: US-MYLANLABS-2013S1028487

PATIENT
  Sex: Male

DRUGS (1)
  1. SUMATRIPTAN TABLETS, USP [Suspect]
     Active Substance: SUMATRIPTAN
     Indication: HEADACHE
     Dosage: 50 MG,PRN
     Route: 048
     Dates: start: 2008

REACTIONS (2)
  - No adverse event [Not Recovered/Not Resolved]
  - Wrong technique in drug usage process [Not Recovered/Not Resolved]
